FAERS Safety Report 20842146 (Version 1)
Quarter: 2022Q2

REPORT INFORMATION
  Report Type: Spontaneous
  Country: US (occurrence: US)
  Receive Date: 20220518
  Receipt Date: 20220518
  Transmission Date: 20220721
  Serious: No
  Sender: FDA-Public Use
  Company Number: US-BRISTOL-MYERS SQUIBB COMPANY-2022-037599

PATIENT
  Age: 74 Year
  Sex: Female
  Weight: 49.89 kg

DRUGS (1)
  1. ELIQUIS [Suspect]
     Active Substance: APIXABAN
     Indication: Thrombosis
     Dosage: DOSE : 5 MG;     FREQ : TWO TABS IN THE MORNING AND TWO TABS IN THE EVENING FOR THE FIRST 7 DAYS
     Route: 048
     Dates: start: 20220506

REACTIONS (1)
  - Off label use [Unknown]
